FAERS Safety Report 21503886 (Version 1)
Quarter: 2022Q4

REPORT INFORMATION
  Report Type: Report from Study
  Country: CA (occurrence: CA)
  Receive Date: 20221025
  Receipt Date: 20221025
  Transmission Date: 20230113
  Serious: Yes (Life-Threatening, Hospitalization, Other)
  Sender: FDA-Public Use
  Company Number: CA-BRISTOL-MYERS SQUIBB COMPANY-2022-034537

PATIENT
  Age: 66 Year
  Sex: Male

DRUGS (8)
  1. OPDIVO [Suspect]
     Active Substance: NIVOLUMAB
     Indication: Oesophageal adenocarcinoma
     Route: 042
     Dates: start: 20220331
  2. OPDIVO [Suspect]
     Active Substance: NIVOLUMAB
     Route: 042
     Dates: start: 20220331, end: 20220804
  3. PANTOPRAZOLE [Concomitant]
     Active Substance: PANTOPRAZOLE
     Indication: Gastrooesophageal reflux disease
     Route: 048
  4. TINZAPARIN [Concomitant]
     Active Substance: TINZAPARIN
     Indication: Deep vein thrombosis
     Dosage: 16000
     Route: 058
  5. TINZAPARIN [Concomitant]
     Active Substance: TINZAPARIN
     Indication: Pulmonary embolism
  6. NEBIVOLOL [Concomitant]
     Active Substance: NEBIVOLOL
     Indication: Product used for unknown indication
     Dosage: 16000
     Route: 048
  7. TADALAFIL [Concomitant]
     Active Substance: TADALAFIL
     Indication: Product used for unknown indication
     Route: 048
  8. CETIRIZINE [Concomitant]
     Active Substance: CETIRIZINE HYDROCHLORIDE
     Indication: Product used for unknown indication
     Route: 048

REACTIONS (14)
  - Cough [Not Recovered/Not Resolved]
  - Dyspepsia [Recovered/Resolved]
  - Dyspnoea [Unknown]
  - Tenderness [Unknown]
  - Weight increased [Unknown]
  - Memory impairment [Unknown]
  - Fatigue [Unknown]
  - Appendicitis [Recovered/Resolved]
  - Septic shock [Recovered/Resolved]
  - Cerebrovascular accident [Recovered/Resolved]
  - Acute kidney injury [Recovered/Resolved]
  - Infarction [Unknown]
  - Fall [Unknown]
  - Bacteraemia [Unknown]

NARRATIVE: CASE EVENT DATE: 20220808
